FAERS Safety Report 17117460 (Version 5)
Quarter: 2020Q2

REPORT INFORMATION
  Report Type: Report from Study
  Country: BR (occurrence: BR)
  Receive Date: 20191205
  Receipt Date: 20200421
  Transmission Date: 20200713
  Serious: Yes (Other)
  Sender: FDA-Public Use
  Company Number: PHHY2019BR186949

PATIENT
  Age: 49 Year
  Sex: Female
  Weight: 118 kg

DRUGS (13)
  1. ENALAPRIL [Concomitant]
     Active Substance: ENALAPRIL
     Indication: HYPERTENSION
     Dosage: 4 DF/DAY
     Route: 065
  2. HYDROCHLOROTHIAZIDE. [Concomitant]
     Active Substance: HYDROCHLOROTHIAZIDE
     Indication: HYPERTENSION
     Dosage: 20 MG/DAY
     Route: 048
  3. CABERGOLINE. [Concomitant]
     Active Substance: CABERGOLINE
     Dosage: 7 DF, QW
     Route: 048
     Dates: start: 2018
  4. INSULIN [Concomitant]
     Active Substance: INSULIN NOS
     Indication: DIABETES MELLITUS
     Dosage: 10 MG/DAY
     Route: 058
  5. CABERGOLINE. [Concomitant]
     Active Substance: CABERGOLINE
     Indication: ACROMEGALY
     Dosage: UNK
     Route: 065
     Dates: start: 2017
  6. CEFALEXIN [Concomitant]
     Active Substance: CEPHALEXIN
     Indication: PRODUCT USED FOR UNKNOWN INDICATION
     Dosage: 500 MG, UNK
     Route: 065
     Dates: start: 20190910
  7. ASA [Concomitant]
     Active Substance: ASPIRIN
     Indication: BLOOD DISORDER
     Dosage: 100 MG/DAY
     Route: 048
  8. ATENOLOL. [Concomitant]
     Active Substance: ATENOLOL
     Indication: HYPERTENSION
     Dosage: 4 DF/DAY
     Route: 048
  9. GLIFAGE [Concomitant]
     Active Substance: METFORMIN HYDROCHLORIDE
     Indication: DIABETES MELLITUS
     Dosage: 4 DF/DAY
     Route: 065
  10. PURAN [Concomitant]
     Active Substance: LEVOTHYROXINE SODIUM
     Indication: THYROID DISORDER
     Dosage: 150 MG DAY
     Route: 048
  11. IBUPROFEN. [Concomitant]
     Active Substance: IBUPROFEN
     Indication: PRODUCT USED FOR UNKNOWN INDICATION
     Dosage: 100 MG, UNK
     Route: 065
     Dates: start: 20190910
  12. SANDOSTATIN LAR DEPOT [Suspect]
     Active Substance: OCTREOTIDE ACETATE
     Indication: ACROMEGALY
     Dosage: 30 MG, QMO
     Route: 030
     Dates: start: 20151204
  13. GLICAZIDA [Concomitant]
     Active Substance: GLICLAZIDE
     Indication: DIABETES MELLITUS
     Dosage: 4 DF/DAY
     Route: 048

REACTIONS (26)
  - Influenza [Unknown]
  - Injection site mass [Recovered/Resolved]
  - Tympanic membrane perforation [Unknown]
  - Otorrhoea [Unknown]
  - Ear pain [Unknown]
  - Blood cholesterol increased [Not Recovered/Not Resolved]
  - Gingival disorder [Unknown]
  - Mastication disorder [Unknown]
  - Injection site swelling [Recovered/Resolved]
  - Memory impairment [Not Recovered/Not Resolved]
  - Gait disturbance [Recovered/Resolved]
  - Injection site inflammation [Recovered/Resolved]
  - Oropharyngeal discomfort [Unknown]
  - Ear disorder [Unknown]
  - Movement disorder [Recovered/Resolved]
  - Oropharyngeal pain [Unknown]
  - Needle issue [Unknown]
  - Self esteem decreased [Unknown]
  - Malaise [Unknown]
  - Renal failure [Unknown]
  - Blood triglycerides increased [Not Recovered/Not Resolved]
  - Tooth loss [Unknown]
  - Head discomfort [Not Recovered/Not Resolved]
  - Blindness [Unknown]
  - Injection site erythema [Recovered/Resolved]
  - Injection site pain [Recovered/Resolved]

NARRATIVE: CASE EVENT DATE: 20151204
